FAERS Safety Report 19958166 (Version 1)
Quarter: 2021Q4

REPORT INFORMATION
  Report Type: Report from Study
  Country: ZA (occurrence: ZA)
  Receive Date: 20211015
  Receipt Date: 20211015
  Transmission Date: 20220303
  Serious: Yes (Life-Threatening, Hospitalization, Other)
  Sender: FDA-Public Use
  Company Number: ZA-MYLANLABS-2021M1070621

PATIENT
  Age: 8 Day
  Sex: Male
  Weight: 3.6 kg

DRUGS (4)
  1. ABACAVIR\LAMIVUDINE [Suspect]
     Active Substance: ABACAVIR\LAMIVUDINE
     Indication: Exposure to communicable disease
     Dosage: UNK
     Dates: start: 20210915, end: 20210915
  2. LOPINAVIR\RITONAVIR [Suspect]
     Active Substance: LOPINAVIR\RITONAVIR
     Indication: Exposure to communicable disease
     Dosage: UNK
     Dates: start: 20210915, end: 20210915
  3. ZIDOVUDINE [Suspect]
     Active Substance: ZIDOVUDINE
     Indication: Prophylaxis against HIV infection
     Dosage: 15 MILLIGRAM, BID
     Route: 048
     Dates: start: 20210907
  4. NEVIRAPINE [Suspect]
     Active Substance: NEVIRAPINE
     Indication: Prophylaxis against HIV infection
     Dosage: 15 MILLIGRAM, QD
     Route: 048
     Dates: start: 20210907

REACTIONS (8)
  - Hyperkalaemia [Recovered/Resolved]
  - Haemoglobin decreased [Not Recovered/Not Resolved]
  - Blood pH increased [Unknown]
  - PCO2 decreased [Unknown]
  - PO2 decreased [Unknown]
  - Base excess increased [Unknown]
  - Oxygen saturation decreased [Unknown]
  - Weight decreased [Recovered/Resolved]

NARRATIVE: CASE EVENT DATE: 20210915
